FAERS Safety Report 17222951 (Version 1)
Quarter: 2020Q1

REPORT INFORMATION
  Report Type: Report from Study
  Country: US (occurrence: US)
  Receive Date: 20200102
  Receipt Date: 20200102
  Transmission Date: 20200409
  Serious: Yes (Other)
  Sender: FDA-Public Use
  Company Number: US-ROCHE-2506343

PATIENT
  Sex: Female

DRUGS (4)
  1. METHOHEXITAL [Concomitant]
     Active Substance: METHOHEXITAL
     Dosage: 10-20-MG
     Route: 042
  2. DIAZEPAM. [Suspect]
     Active Substance: DIAZEPAM
     Indication: ANAESTHESIA
     Route: 030
  3. DIAZEPAM. [Suspect]
     Active Substance: DIAZEPAM
     Dosage: 10-20-MG
     Route: 042
  4. NITROUS OXIDE. [Suspect]
     Active Substance: NITROUS OXIDE
     Indication: ANAESTHESIA
     Route: 065

REACTIONS (1)
  - Depressed level of consciousness [Recovered/Resolved]
